FAERS Safety Report 23576499 (Version 1)
Quarter: 2024Q1

REPORT INFORMATION
  Report Type: Spontaneous
  Country: US (occurrence: US)
  Receive Date: 20240228
  Receipt Date: 20240228
  Transmission Date: 20240410
  Serious: No
  Sender: FDA-Public Use
  Company Number: US-UPSHER-SMITH LABORATORIES, LLC-2023USL00512

PATIENT
  Sex: Male
  Weight: 126.98 kg

DRUGS (8)
  1. MYORISAN [Suspect]
     Active Substance: ISOTRETINOIN
     Indication: Acne
     Dosage: 20 MG, 2X/DAY
     Route: 048
     Dates: start: 20230316, end: 20230414
  2. ALCOHOL [Suspect]
     Active Substance: ALCOHOL
     Dosage: BINGE DRINKING (1 INCIDENCE)
     Dates: start: 2023
  3. ALBUTEROL SULFATE [Concomitant]
     Active Substance: ALBUTEROL SULFATE
     Dosage: INHALE 180 ?G (2 PUFFS), EVERY 4 TO 6 HOURS AS NEEDED.
  4. BACLOFEN [Concomitant]
     Active Substance: BACLOFEN
     Dosage: 5 TO 10 MG, 1 TO 3X/DAY AS NEEDED FOR SCIATIC PAIN
  5. GABAPENTIN [Concomitant]
     Active Substance: GABAPENTIN
     Dosage: 300 MG, 3X/DAY (DOSE MAY BE TITRATED AS NEEDED FOR PAIN RELIEF), 1800 TO 3600 MG/DAY IN DIVIDED DOSE
  6. MELOXICAM [Concomitant]
     Active Substance: MELOXICAM
     Dosage: 15 MG, 1X/DAY WITH A MEAL
     Route: 048
  7. OMEPRAZOLE [Concomitant]
     Active Substance: OMEPRAZOLE
     Dosage: 40 MG, 1X/DAY
     Route: 048
  8. CHOLECALCIFEROL [Concomitant]
     Active Substance: CHOLECALCIFEROL
     Dosage: 125 ?G (5000 UNITS), 1X/DAY
     Route: 048

REACTIONS (6)
  - Alanine aminotransferase increased [Unknown]
  - Aspartate aminotransferase increased [Unknown]
  - Blood triglycerides increased [Unknown]
  - Dry skin [Unknown]
  - Lip dry [Unknown]
  - Dry eye [Unknown]

NARRATIVE: CASE EVENT DATE: 20230101
